FAERS Safety Report 25491222 (Version 2)
Quarter: 2025Q3

REPORT INFORMATION
  Report Type: Spontaneous
  Country: JP (occurrence: JP)
  Receive Date: 20250629
  Receipt Date: 20250713
  Transmission Date: 20251021
  Serious: Yes (Other)
  Sender: MERCK SHARP & DOHME LLC
  Company Number: JP-009507513-2298467

PATIENT
  Age: 75 Year
  Sex: Male

DRUGS (3)
  1. KEYTRUDA [Suspect]
     Active Substance: PEMBROLIZUMAB
     Indication: Oesophageal carcinoma recurrent
     Route: 065
     Dates: start: 20240530, end: 20240909
  2. FLUOROURACIL [Suspect]
     Active Substance: FLUOROURACIL
     Indication: Oesophageal carcinoma recurrent
     Route: 065
     Dates: start: 20240530, end: 20240909
  3. CISPLATIN [Suspect]
     Active Substance: CISPLATIN
     Indication: Oesophageal carcinoma recurrent
     Route: 065
     Dates: start: 20240530, end: 20240909

REACTIONS (6)
  - Immune-mediated mucositis [Recovering/Resolving]
  - Diarrhoea [Unknown]
  - Inappropriate schedule of product administration [Unknown]
  - Inappropriate schedule of product administration [Unknown]
  - Inappropriate schedule of product administration [Unknown]
  - Oral candidiasis [Recovering/Resolving]

NARRATIVE: CASE EVENT DATE: 20240101
